FAERS Safety Report 4854517-6 (Version None)
Quarter: 2005Q4

REPORT INFORMATION
  Report Type: 
  Country: None (occurrence: None)
  Receive Date: 20051215
  Receipt Date: 20051206
  Transmission Date: 20060501
  Serious: Yes (Hospitalization)
  Sender: FDA-Public Use
  Company Number: FR-AVENTIS-200514059FR

PATIENT
  Age: 72 Year
  Sex: Female
  Weight: 61 kg

DRUGS (3)
  1. TAXOTERE [Suspect]
     Indication: BREAST CANCER METASTATIC
     Route: 042
     Dates: start: 20050418, end: 20050418
  2. MYOCET [Suspect]
     Indication: BREAST CANCER METASTATIC
     Route: 042
     Dates: start: 20050418, end: 20050418
  3. PRIMPERAN INJ [Concomitant]
     Indication: NAUSEA
     Dates: start: 20050414

REACTIONS (2)
  - BONE MARROW FAILURE [None]
  - PYREXIA [None]
